FAERS Safety Report 7951873-7 (Version None)
Quarter: 2011Q4

REPORT INFORMATION
  Report Type: 
  Country: None (occurrence: None)
  Receive Date: 20111201
  Receipt Date: 20111201
  Transmission Date: 20120403
  Serious: No
  Sender: FDA-Public Use
  Company Number: None

PATIENT

DRUGS (2)
  1. PULMICORT [Suspect]
  2. XOPENEX [Concomitant]

REACTIONS (2)
  - PRODUCT BARCODE ISSUE [None]
  - PRODUCT PACKAGING ISSUE [None]
